FAERS Safety Report 8558692-1 (Version None)
Quarter: 2012Q3

REPORT INFORMATION
  Report Type: 
  Country: None (occurrence: None)
  Receive Date: 20120801
  Receipt Date: 20120720
  Transmission Date: 20120928
  Serious: Yes (Hospitalization, Disabling, Other)
  Sender: FDA-Public Use
  Company Number: US-009507513-1205USA02852

PATIENT

DRUGS (1)
  1. FOSAMAX [Suspect]
     Indication: OSTEOPOROSIS
     Dosage: 70 MG, QW
     Route: 048
     Dates: start: 20000101

REACTIONS (22)
  - COUGH [None]
  - ELECTROCARDIOGRAM ABNORMAL [None]
  - ENDOSCOPY [None]
  - CAECUM OPERATION [None]
  - ARTHRALGIA [None]
  - CHEST PAIN [None]
  - NASOPHARYNGITIS [None]
  - LUNG NEOPLASM [None]
  - HEADACHE [None]
  - COLON CANCER [None]
  - INTESTINAL OBSTRUCTION [None]
  - ADVERSE EVENT [None]
  - DYSAESTHESIA [None]
  - APPENDICECTOMY [None]
  - FALL [None]
  - OSTEOPOROSIS [None]
  - STRESS FRACTURE [None]
  - LOW TURNOVER OSTEOPATHY [None]
  - BACK PAIN [None]
  - PAIN IN EXTREMITY [None]
  - JOINT INJURY [None]
  - FEMUR FRACTURE [None]
